FAERS Safety Report 8549858-5 (Version None)
Quarter: 2012Q3

REPORT INFORMATION
  Report Type: 
  Country: None (occurrence: None)
  Receive Date: 20120730
  Receipt Date: 20110725
  Transmission Date: 20120928
  Serious: No
  Sender: FDA-Public Use
  Company Number: US-GLAXOSMITHKLINE-A0938818A

PATIENT
  Age: 61 Year
  Sex: Female

DRUGS (2)
  1. NAPROXEN [Suspect]
     Indication: MIGRAINE
     Dosage: 500MG UNKNOWN
     Dates: start: 20100101
  2. IMITREX [Suspect]
     Indication: MIGRAINE
     Dosage: 50MG UNKNOWN
     Dates: start: 20100101

REACTIONS (2)
  - MALAISE [None]
  - SLEEP DISORDER [None]
